FAERS Safety Report 6366822 (Version 2)
Quarter: 2020Q3

REPORT INFORMATION
  Report Type: Spontaneous
  Country: DK (occurrence: DK)
  Receive Date: 20070725
  Receipt Date: 20071001
  Transmission Date: 20201105
  Serious: Yes (Other)
  Sender: FDA-Public Use
  Company Number: DK-ROCHE-507380

PATIENT
  Age: 62 Year
  Sex: Female
  Weight: 66 kg

DRUGS (3)
  1. XELODA [Concomitant]
     Active Substance: CAPECITABINE
     Indication: BREAST CANCER
     Dates: start: 20060629
  2. IBANDRONIC ACID. [Suspect]
     Active Substance: IBANDRONIC ACID
     Route: 065
     Dates: start: 20051010, end: 20060207
  3. ZOMETA [Suspect]
     Active Substance: ZOLEDRONIC ACID
     Dosage: FORM: CONC. FOR SOLUTION
     Route: 042
     Dates: start: 20060207, end: 20070420

REACTIONS (3)
  - Pain in jaw [Unknown]
  - Osteonecrosis [Not Recovered/Not Resolved]
  - Infection [Unknown]

NARRATIVE: CASE EVENT DATE: 20070301
